FAERS Safety Report 11644021 (Version 3)
Quarter: 2016Q1

REPORT INFORMATION
  Report Type: Spontaneous
  Country: US (occurrence: US)
  Receive Date: 20151020
  Receipt Date: 20160204
  Transmission Date: 20160525
  Serious: Yes (Other)
  Sender: FDA-Public Use
  Company Number: US-WATSON-2015-16749

PATIENT
  Sex: Female

DRUGS (1)
  1. INFED [Suspect]
     Active Substance: IRON DEXTRAN
     Indication: PRODUCT USED FOR UNKNOWN INDICATION
     Dosage: UNK, UNKNOWN
     Route: 065
     Dates: start: 201506

REACTIONS (5)
  - Dyspnoea [Unknown]
  - Disorientation [Unknown]
  - Palpitations [Unknown]
  - Flushing [Unknown]
  - Dizziness [Unknown]

NARRATIVE: CASE EVENT DATE: 201506
